FAERS Safety Report 15773457 (Version 2)
Quarter: 2018Q4

REPORT INFORMATION
  Report Type: Spontaneous
  Country: US (occurrence: US)
  Receive Date: 20181228
  Receipt Date: 20181231
  Transmission Date: 20190205
  Serious: Yes (Other)
  Sender: FDA-Public Use
  Company Number: US-CELGENEUS-USA-20181207859

PATIENT
  Sex: Female

DRUGS (1)
  1. OTEZLA [Suspect]
     Active Substance: APREMILAST
     Indication: PSORIASIS
     Dosage: 60 MILLIGRAM
     Route: 048
     Dates: start: 20180627

REACTIONS (5)
  - Papilloma viral infection [Unknown]
  - Squamous cell carcinoma of skin [Unknown]
  - Headache [Unknown]
  - Squamous cell carcinoma of the cervix [Unknown]
  - Diarrhoea [Unknown]
